FAERS Safety Report 21574171 (Version 3)
Quarter: 2022Q4

REPORT INFORMATION
  Report Type: Spontaneous
  Country: JP (occurrence: JP)
  Receive Date: 20221109
  Receipt Date: 20221207
  Transmission Date: 20230113
  Serious: Yes (Hospitalization)
  Sender: FDA-Public Use
  Company Number: JP-Eisai-202210394_LEN-EC_P_1

PATIENT
  Age: 72 Year
  Sex: Female

DRUGS (3)
  1. LENVIMA [Suspect]
     Active Substance: LENVATINIB
     Indication: Endometrial cancer recurrent
     Route: 048
     Dates: start: 20221013, end: 20221027
  2. KEYTRUDA [Concomitant]
     Active Substance: PEMBROLIZUMAB
     Indication: Endometrial cancer recurrent
     Route: 041
     Dates: start: 20221013
  3. AMLODIPINE [Concomitant]
     Active Substance: AMLODIPINE BESYLATE
     Indication: Hypertension
     Route: 048

REACTIONS (9)
  - Anaemia [Recovering/Resolving]
  - Malaise [Not Recovered/Not Resolved]
  - Decreased appetite [Not Recovered/Not Resolved]
  - Acute kidney injury [Recovering/Resolving]
  - Platelet count decreased [Recovered/Resolved]
  - Hypomagnesaemia [Recovered/Resolved]
  - Hypertension [Recovering/Resolving]
  - Hypokalaemia [Recovered/Resolved]
  - Urine protein/creatinine ratio increased [Recovering/Resolving]

NARRATIVE: CASE EVENT DATE: 20221001
